FAERS Safety Report 19416456 (Version 1)
Quarter: 2021Q2

REPORT INFORMATION
  Report Type: Spontaneous
  Country: CR (occurrence: CR)
  Receive Date: 20210614
  Receipt Date: 20210614
  Transmission Date: 20210717
  Serious: Yes (Other)
  Sender: FDA-Public Use
  Company Number: CR-PFIZER INC-2021666199

PATIENT
  Age: 37 Year
  Sex: Male

DRUGS (1)
  1. LIPITOR [Suspect]
     Active Substance: ATORVASTATIN CALCIUM
     Indication: BLOOD CHOLESTEROL
     Dosage: 1 DF
     Route: 048
     Dates: start: 202102, end: 20210531

REACTIONS (3)
  - Infarction [Unknown]
  - Feeling abnormal [Unknown]
  - Hypertension [Unknown]
